FAERS Safety Report 5094343-9 (Version None)
Quarter: 2006Q3

REPORT INFORMATION
  Report Type: 
  Country: None (occurrence: None)
  Receive Date: 20060829
  Receipt Date: 20060811
  Transmission Date: 20061208
  Serious: Yes (Hospitalization, Other)
  Sender: FDA-Public Use
  Company Number: CIP06001890

PATIENT
  Age: 39 Year
  Sex: Male

DRUGS (3)
  1. ASACOL [Suspect]
     Indication: CROHN'S DISEASE
  2. ALBUTEROL SPIROS [Concomitant]
  3. URSODEOXYCHOLIC ACID [Concomitant]

REACTIONS (21)
  - ALLERGIC GRANULOMATOUS ANGIITIS [None]
  - ARTHRALGIA [None]
  - ASTHENIA [None]
  - ASTHMA [None]
  - BLASTOCYSTIS INFECTION [None]
  - BONE MARROW EOSINOPHILIC LEUKOCYTE COUNT INCREASED [None]
  - CEREBRAL ISCHAEMIA [None]
  - CHRONIC OBSTRUCTIVE PULMONARY DISEASE [None]
  - EMPHYSEMA [None]
  - HAEMATURIA [None]
  - HEARING IMPAIRED [None]
  - HYPERSENSITIVITY [None]
  - IIIRD NERVE PARALYSIS [None]
  - MONONEUROPATHY MULTIPLEX [None]
  - NYSTAGMUS [None]
  - OBSTRUCTIVE AIRWAYS DISORDER [None]
  - PARAESTHESIA [None]
  - SINUSITIS [None]
  - VERTIGO [None]
  - VESTIBULAR DISORDER [None]
  - WEIGHT DECREASED [None]
